FAERS Safety Report 11310407 (Version 2)
Quarter: 2015Q3

REPORT INFORMATION
  Report Type: Spontaneous
  Country: JP (occurrence: JP)
  Receive Date: 20150724
  Receipt Date: 20150804
  Transmission Date: 20151125
  Serious: Yes (Death)
  Sender: FDA-Public Use
  Company Number: JP-009507513-1507JPN011431

PATIENT
  Age: 81 Year
  Sex: Male
  Weight: 46.5 kg

DRUGS (10)
  1. LANSOPRAZOLE. [Concomitant]
     Active Substance: LANSOPRAZOLE
     Indication: GASTROOESOPHAGEAL REFLUX DISEASE
     Dosage: 15 MG, QD
     Route: 048
     Dates: start: 20140630, end: 20140713
  2. DAITALIC [Concomitant]
     Active Substance: AZOSEMIDE
     Indication: CARDIAC FAILURE CHRONIC
     Dosage: 60 MG, QD
     Route: 048
     Dates: start: 20140630, end: 20140713
  3. MUCODYNE [Concomitant]
     Active Substance: CARBOCYSTEINE
     Indication: CHRONIC SINUSITIS
     Dosage: 1500 MG, TID
     Route: 048
     Dates: start: 20140630, end: 20140709
  4. MONTELUKAST [Concomitant]
     Active Substance: MONTELUKAST SODIUM
     Indication: CHRONIC OBSTRUCTIVE PULMONARY DISEASE
     Dosage: 100 MG, QD
     Route: 048
     Dates: start: 20140630, end: 20140713
  5. HALFDIGOXIN [Concomitant]
     Active Substance: DIGOXIN
     Indication: ATRIAL FIBRILLATION
     Dosage: 125 MICROGRAM, QD
     Route: 048
     Dates: start: 20130630, end: 20140713
  6. CLARITIN [Concomitant]
     Active Substance: LORATADINE
     Indication: RHINITIS ALLERGIC
     Dosage: 100 MG, QD
     Route: 048
     Dates: start: 20140630, end: 20140713
  7. CANCIDAS [Suspect]
     Active Substance: CASPOFUNGIN ACETATE
     Indication: ASPERGILLUS INFECTION
     Dosage: 70 MG, QD
     Route: 041
     Dates: start: 20140709, end: 20140709
  8. CANCIDAS [Suspect]
     Active Substance: CASPOFUNGIN ACETATE
     Indication: ASPERGILLUS INFECTION
     Dosage: 50 MG, QD
     Route: 041
     Dates: start: 20140710, end: 20140714
  9. MAGLAX (MAGNESIUM OXIDE) [Concomitant]
     Active Substance: MAGNESIUM OXIDE
     Indication: CONSTIPATION
     Dosage: 300 MG, QD
     Route: 048
     Dates: start: 20140630, end: 20140713
  10. CARBOCYSTEINE [Concomitant]
     Active Substance: CARBOCYSTEINE
     Indication: CHRONIC SINUSITIS
     Dosage: 500 MG, TID
     Route: 048
     Dates: start: 20140709, end: 20140713

REACTIONS (1)
  - Interstitial lung disease [Fatal]

NARRATIVE: CASE EVENT DATE: 20140713
